FAERS Safety Report 23539201 (Version 1)
Quarter: 2024Q1

REPORT INFORMATION
  Report Type: Spontaneous
  Country: US (occurrence: US)
  Receive Date: 20240219
  Receipt Date: 20240219
  Transmission Date: 20240409
  Serious: No
  Sender: FDA-Public Use
  Company Number: US-009507513-2402USA004533

PATIENT
  Age: 77 Year
  Sex: Female

DRUGS (4)
  1. CANCIDAS [Suspect]
     Active Substance: CASPOFUNGIN ACETATE
     Indication: Scedosporium infection
     Dosage: UNK
     Route: 042
  2. CANCIDAS [Suspect]
     Active Substance: CASPOFUNGIN ACETATE
     Indication: Candida osteomyelitis
  3. PREDNISONE [Concomitant]
     Active Substance: PREDNISONE
     Indication: Polymyalgia rheumatica
     Dosage: LOW DOSE, UNK
  4. VORICONAZOLE [Concomitant]
     Active Substance: VORICONAZOLE
     Indication: Fungal infection
     Dosage: UNK

REACTIONS (1)
  - Product use in unapproved indication [Unknown]
